FAERS Safety Report 19459074 (Version 7)
Quarter: 2021Q3

REPORT INFORMATION
  Report Type: Spontaneous
  Country: US (occurrence: US)
  Receive Date: 20210624
  Receipt Date: 20210728
  Transmission Date: 20211014
  Serious: Yes (Hospitalization, Other)
  Sender: FDA-Public Use
  Company Number: US-CELGENEUS-USA-20210604542

PATIENT
  Age: 43 Year
  Sex: Female
  Weight: 86.26 kg

DRUGS (3)
  1. ZEPOSIA [Suspect]
     Active Substance: OZANIMOD HYDROCHLORIDE
     Indication: MULTIPLE SCLEROSIS
     Dosage: .23 MILLIGRAM
     Route: 048
     Dates: start: 20210606, end: 202106
  2. ZEPOSIA [Suspect]
     Active Substance: OZANIMOD HYDROCHLORIDE
     Dosage: FULL DOSE FOR 1 DAY
     Route: 048
     Dates: start: 202106, end: 202106
  3. ZEPOSIA [Suspect]
     Active Substance: OZANIMOD HYDROCHLORIDE
     Dosage: .46 MILLIGRAM
     Route: 048
     Dates: start: 20210606, end: 202106

REACTIONS (5)
  - Haemorrhage [Not Recovered/Not Resolved]
  - Peripheral swelling [Recovering/Resolving]
  - Anaemia [Not Recovered/Not Resolved]
  - Swelling face [Recovering/Resolving]
  - Back pain [Not Recovered/Not Resolved]

NARRATIVE: CASE EVENT DATE: 202106
